FAERS Safety Report 6241788-7 (Version None)
Quarter: 2009Q2

REPORT INFORMATION
  Report Type: 
  Country: None (occurrence: None)
  Receive Date: 20090623
  Receipt Date: 20090612
  Transmission Date: 20091009
  Serious: Yes (Death, Life-Threatening, Hospitalization, Disabling)
  Sender: FDA-Public Use
  Company Number: FR-AMGEN-US330080

PATIENT
  Sex: Female
  Weight: 70 kg

DRUGS (8)
  1. ENBREL [Suspect]
     Indication: ANKYLOSING SPONDYLITIS
     Route: 058
     Dates: start: 20070901, end: 20081001
  2. LAMALINE [Concomitant]
     Dosage: UNKNOWN
  3. MICROVAL [Concomitant]
     Indication: ORAL CONTRACEPTION
     Route: 048
  4. ART 50 [Concomitant]
     Dosage: UNKNOWN
     Route: 048
  5. DETENSIEL [Concomitant]
     Dosage: UNKNOWN
     Route: 048
  6. INIPOMP [Concomitant]
     Dosage: UNKNOWN
  7. FENOFIBRATE [Concomitant]
     Indication: CHOLELITHIASIS
     Dosage: UNKNOWN
     Route: 048
  8. BISOPROLOL [Concomitant]
     Dosage: UNKNOWN
     Route: 048

REACTIONS (22)
  - ANURIA [None]
  - ARRHYTHMIA [None]
  - CANDIDA SEPSIS [None]
  - CARDIAC ARREST [None]
  - CHOLESTASIS [None]
  - CONDITION AGGRAVATED [None]
  - ENTEROCOCCAL INFECTION [None]
  - ENTEROCOCCAL SEPSIS [None]
  - ENTEROCOLONIC FISTULA [None]
  - GASTROINTESTINAL NECROSIS [None]
  - LARGE INTESTINAL ULCER HAEMORRHAGE [None]
  - LUNG INFECTION PSEUDOMONAL [None]
  - MALNUTRITION [None]
  - NEUROMYOPATHY [None]
  - PANCREATITIS NECROTISING [None]
  - PELVIC FLUID COLLECTION [None]
  - PERITONITIS BACTERIAL [None]
  - PSEUDOMONAS INFECTION [None]
  - RENAL FAILURE ACUTE [None]
  - RESPIRATORY FAILURE [None]
  - SEPTIC SHOCK [None]
  - STENOTROPHOMONAS SEPSIS [None]
